FAERS Safety Report 13752723 (Version 2)
Quarter: 2017Q3

REPORT INFORMATION
  Report Type: Spontaneous
  Country: GB (occurrence: KW)
  Receive Date: 20170714
  Receipt Date: 20170721
  Transmission Date: 20171127
  Serious: Yes (Other)
  Sender: FDA-Public Use
  Company Number: GB-MYLANLABS-2017M1030504

PATIENT

DRUGS (2)
  1. CLOZAPINE. [Suspect]
     Active Substance: CLOZAPINE
     Indication: SCHIZOPHRENIA
     Dosage: 200 MG, PM
     Route: 048
     Dates: start: 20060201
  2. CLOZAPINE. [Suspect]
     Active Substance: CLOZAPINE
     Dosage: UNK
     Route: 048

REACTIONS (8)
  - Neutropenia [Unknown]
  - Thrombocytopenia [Unknown]
  - Metastases to bone [Unknown]
  - Metastases to liver [Unknown]
  - Schizophrenia [Recovering/Resolving]
  - Drug dose omission [Recovered/Resolved]
  - Anaemia [Not Recovered/Not Resolved]
  - Breast cancer metastatic [Unknown]

NARRATIVE: CASE EVENT DATE: 2016
